FAERS Safety Report 9269438 (Version 1)
Quarter: 2013Q2

REPORT INFORMATION
  Report Type: Spontaneous
  Country: US (occurrence: US)
  Receive Date: 20130503
  Receipt Date: 20130503
  Transmission Date: 20140414
  Serious: Yes (Other)
  Sender: FDA-Public Use
  Company Number: US-NAPPMUNDI-USA-2013-0101684

PATIENT
  Sex: Female

DRUGS (3)
  1. OXYCONTIN TABLETS [Suspect]
     Indication: PRODUCT USED FOR UNKNOWN INDICATION
     Dosage: UNKNOWN
     Route: 048
  2. ENBREL [Suspect]
     Indication: ARTHRITIS
     Dosage: UNKNOWN
  3. REMICADE [Suspect]
     Indication: ARTHRITIS
     Dosage: UNKNOWN

REACTIONS (3)
  - Pulmonary mass [Unknown]
  - Chronic obstructive pulmonary disease [Unknown]
  - Pneumonia [Unknown]
